FAERS Safety Report 11912413 (Version 3)
Quarter: 2016Q1

REPORT INFORMATION
  Report Type: Spontaneous
  Country: US (occurrence: US)
  Receive Date: 20160113
  Receipt Date: 20160315
  Transmission Date: 20160526
  Serious: Yes (Hospitalization)
  Sender: FDA-Public Use
  Company Number: US-BEH-2015057499

PATIENT
  Sex: Female
  Weight: 90 kg

DRUGS (32)
  1. HIZENTRA [Suspect]
     Active Substance: HUMAN IMMUNOGLOBULIN G
     Route: 058
  2. MIRAPEX [Concomitant]
     Active Substance: PRAMIPEXOLE DIHYDROCHLORIDE
  3. VITAMIN C [Concomitant]
     Active Substance: ASCORBIC ACID
  4. MIRALAX [Concomitant]
     Active Substance: POLYETHYLENE GLYCOL 3350
  5. HIZENTRA [Suspect]
     Active Substance: HUMAN IMMUNOGLOBULIN G
     Indication: IMMUNODEFICIENCY COMMON VARIABLE
     Route: 058
  6. HIZENTRA [Suspect]
     Active Substance: HUMAN IMMUNOGLOBULIN G
     Route: 058
  7. DEPAKOTE [Concomitant]
     Active Substance: DIVALPROEX SODIUM
  8. LEVOTHYROXINE. [Concomitant]
     Active Substance: LEVOTHYROXINE
  9. MOBIC [Concomitant]
     Active Substance: MELOXICAM
  10. DAILY MULTIVITAMIN [Concomitant]
     Active Substance: VITAMINS
  11. HIZENTRA [Suspect]
     Active Substance: HUMAN IMMUNOGLOBULIN G
     Route: 058
  12. DIPHENHYDRAMINE. [Concomitant]
     Active Substance: DIPHENHYDRAMINE
  13. RESTFULLLY SLEEP [Concomitant]
  14. SOMA [Concomitant]
     Active Substance: CARISOPRODOL
  15. BENEFIBER [Concomitant]
     Active Substance: STARCH, WHEAT
  16. FISH OIL [Concomitant]
     Active Substance: FISH OIL
  17. RISPERDAL [Concomitant]
     Active Substance: RISPERIDONE
  18. NEXIUM [Concomitant]
     Active Substance: ESOMEPRAZOLE MAGNESIUM
  19. KLONOPIN [Concomitant]
     Active Substance: CLONAZEPAM
  20. CALCIUM+VITAMIN D [Concomitant]
     Active Substance: CALCIUM\VITAMIN D
  21. DOCUSATE SODIUM. [Concomitant]
     Active Substance: DOCUSATE SODIUM
  22. IBUPROFEN. [Concomitant]
     Active Substance: IBUPROFEN
  23. CYMBALTA [Concomitant]
     Active Substance: DULOXETINE HYDROCHLORIDE
  24. PERCOCET [Concomitant]
     Active Substance: ACETAMINOPHEN\OXYCODONE HYDROCHLORIDE
  25. ALEVE [Concomitant]
     Active Substance: NAPROXEN SODIUM
  26. VITAMIN B COMPLEX [Concomitant]
     Active Substance: CYANOCOBALAMIN\DEXPANTHENOL\NIACINAMIDE\PYRIDOXINE HYDROCHLORIDE\RIBOFLAVIN 5^-PHOSPHATE SODIUM\THIAMINE HYDROCHLORIDE\VITAMIN B COMPLEX
  27. SPIRONOLACTONE. [Concomitant]
     Active Substance: SPIRONOLACTONE
  28. LIDOCAINE/PRILOCAINE [Concomitant]
  29. VESICARE [Concomitant]
     Active Substance: SOLIFENACIN SUCCINATE
  30. EPIPEN [Concomitant]
     Active Substance: EPINEPHRINE
  31. TRICOR [Concomitant]
     Active Substance: FENOFIBRATE
  32. MYLANTA [Concomitant]
     Active Substance: ALUMINUM HYDROXIDE\DIMETHICONE\MAGNESIUM HYDROXIDE

REACTIONS (2)
  - Abdominal hernia [Unknown]
  - Hernia repair [Unknown]
